FAERS Safety Report 23889198 (Version 1)
Quarter: 2024Q2

REPORT INFORMATION
  Report Type: Spontaneous
  Country: US (occurrence: None)
  Receive Date: 20240523
  Receipt Date: 20240523
  Transmission Date: 20240716
  Serious: Yes (Disabling, Other)
  Sender: FDA-Public Use
  Company Number: None

PATIENT
  Age: 68 Year
  Sex: Female
  Weight: 65.25 kg

DRUGS (7)
  1. LEQVIO [Suspect]
     Active Substance: INCLISIRAN SODIUM
     Indication: Blood cholesterol increased
     Dosage: 1 INJECTION ONE EVERY 6 MONTHS SUBCUTANEOUS
     Route: 058
     Dates: start: 20240513, end: 20240513
  2. VITAMIN C AND B [Concomitant]
  3. VITAMIN D [Concomitant]
     Active Substance: VITAMIN D NOS
  4. ASPIRIN [Concomitant]
     Active Substance: ASPIRIN
  5. HERBALS\TURMERIC [Concomitant]
     Active Substance: HERBALS\TURMERIC
  6. FISH OIL [Concomitant]
  7. METHYLCOBALAMIN [Concomitant]
     Active Substance: METHYLCOBALAMIN

REACTIONS (3)
  - Urinary tract infection [None]
  - Injection site rash [None]
  - Injection site pruritus [None]

NARRATIVE: CASE EVENT DATE: 20240517
